FAERS Safety Report 9954749 (Version 2)
Quarter: 2014Q1

REPORT INFORMATION
  Report Type: Report from Study
  Country: US (occurrence: US)
  Receive Date: 20140304
  Receipt Date: 20140304
  Transmission Date: 20141002
  Serious: Yes (Hospitalization, Other)
  Sender: FDA-Public Use
  Company Number: US-ABBVIE-13P-163-1074590-00

PATIENT
  Sex: Female
  Weight: 46.31 kg

DRUGS (9)
  1. HUMIRA PEN [Suspect]
     Indication: RHEUMATOID ARTHRITIS
     Dosage: A FEW MONTHS
     Route: 058
     Dates: start: 201012, end: 2011
  2. HUMIRA PEN [Suspect]
     Route: 058
     Dates: start: 20130424
  3. PENTASA [Concomitant]
     Indication: COLITIS ULCERATIVE
  4. WELCHOL [Concomitant]
     Indication: BLOOD CHOLESTEROL INCREASED
  5. NAPROXEN [Concomitant]
     Indication: PAIN
  6. NORVASC [Concomitant]
     Indication: HYPERTENSION
  7. OMEPRAZOLE [Concomitant]
     Indication: COLITIS ULCERATIVE
  8. IMURAN [Concomitant]
     Indication: COLITIS ULCERATIVE
  9. AMLODIPINE [Concomitant]
     Indication: PRODUCT USED FOR UNKNOWN INDICATION

REACTIONS (2)
  - Pleural effusion [Recovering/Resolving]
  - Respiratory tract infection [Recovered/Resolved]
